FAERS Safety Report 22349580 (Version 1)
Quarter: 2023Q2

REPORT INFORMATION
  Report Type: Spontaneous
  Country: NL (occurrence: NL)
  Receive Date: 20230522
  Receipt Date: 20230522
  Transmission Date: 20230722
  Serious: Yes (Other)
  Sender: FDA-Public Use
  Company Number: NL-MACLEODS PHARMACEUTICALS US LTD-MAC2023041408

PATIENT

DRUGS (3)
  1. TENOFOVIR DISOPROXIL [Suspect]
     Active Substance: TENOFOVIR DISOPROXIL
     Indication: Acquired immunodeficiency syndrome
     Dosage: 300 MILLIGRAM, QD
     Route: 065
     Dates: start: 200309
  2. DIDANOSINE [Concomitant]
     Active Substance: DIDANOSINE
     Indication: Acquired immunodeficiency syndrome
     Dosage: 250 MILLIGRAM, QD
     Route: 065
     Dates: start: 200309
  3. Lopinavir-ritonavir (LPV-r) [Concomitant]
     Indication: Acquired immunodeficiency syndrome
     Dosage: 1 DOSAGE FORM, BID
     Route: 065
     Dates: start: 200309

REACTIONS (3)
  - Toxicity to various agents [Recovered/Resolved]
  - Osteomalacia [Recovered/Resolved]
  - Fanconi syndrome [Recovered/Resolved]
